FAERS Safety Report 7198639-6 (Version None)
Quarter: 2010Q4

REPORT INFORMATION
  Report Type: 
  Country: None (occurrence: None)
  Receive Date: 20101227
  Receipt Date: 20100104
  Transmission Date: 20110411
  Serious: Yes (Other)
  Sender: FDA-Public Use
  Company Number: US-ABBOTT-10P-163-0617335-00

PATIENT
  Sex: Female
  Weight: 19.068 kg

DRUGS (1)
  1. CLARITHROMYCIN [Suspect]
     Indication: EAR INFECTION
     Dates: start: 20090201, end: 20090201

REACTIONS (2)
  - DEAFNESS [None]
  - TINNITUS [None]
